FAERS Safety Report 6288250-3 (Version None)
Quarter: 2009Q3

REPORT INFORMATION
  Report Type: 
  Country: None (occurrence: None)
  Receive Date: 20090727
  Receipt Date: 20090727
  Transmission Date: 20100115
  Serious: No
  Sender: FDA-Public Use
  Company Number: None

PATIENT
  Age: 64 Year
  Sex: Female
  Weight: 86.1834 kg

DRUGS (1)
  1. ZETIA [Suspect]
     Dosage: 10 MG 1 TAB/DAILY PO
     Route: 048
     Dates: start: 20090714, end: 20090716

REACTIONS (5)
  - CHEST DISCOMFORT [None]
  - FATIGUE [None]
  - SOMNOLENCE [None]
  - STOMATITIS [None]
  - SWOLLEN TONGUE [None]
